FAERS Safety Report 20541685 (Version 1)
Quarter: 2022Q1

REPORT INFORMATION
  Report Type: Spontaneous
  Country: PT (occurrence: PT)
  Receive Date: 20220302
  Receipt Date: 20220302
  Transmission Date: 20220424
  Serious: Yes (Other)
  Sender: FDA-Public Use
  Company Number: PT-MYLANLABS-2021M1087241

PATIENT
  Age: 27 Year
  Sex: Female

DRUGS (3)
  1. RISPERDAL [Suspect]
     Active Substance: RISPERIDONE
     Indication: Product used for unknown indication
     Dosage: 9 MILLIGRAM, ID
     Route: 065
  2. LITHIUM [Concomitant]
     Active Substance: LITHIUM
     Route: 065
  3. LITHIUM [Concomitant]
     Active Substance: LITHIUM
     Route: 065

REACTIONS (1)
  - Oculogyric crisis [Unknown]
